FAERS Safety Report 8961151 (Version 4)
Quarter: 2013Q1

REPORT INFORMATION
  Report Type: Spontaneous
  Country: CA (occurrence: CA)
  Receive Date: 20121212
  Receipt Date: 20130129
  Transmission Date: 20140127
  Serious: Yes (Hospitalization)
  Sender: FDA-Public Use
  Company Number: CA-GLAXOSMITHKLINE-A1004762A

PATIENT
  Age: 19 Year
  Sex: Female

DRUGS (3)
  1. VOTRIENT [Suspect]
     Indication: SARCOMA
     Dosage: 800MG PER DAY
     Route: 048
     Dates: start: 20120927
  2. DALTEPARIN [Concomitant]
     Indication: DEEP VEIN THROMBOSIS
     Dosage: 7500CC PER DAY
     Route: 058
     Dates: start: 201111
  3. TYLENOL 3 [Concomitant]
     Dates: start: 201111

REACTIONS (6)
  - Pneumothorax [Not Recovered/Not Resolved]
  - Pleural effusion [Unknown]
  - Metastases to pleura [Unknown]
  - Synovial sarcoma metastatic [Unknown]
  - Hair colour changes [Unknown]
  - Impaired healing [Unknown]
